FAERS Safety Report 6112181-2 (Version None)
Quarter: 2009Q1

REPORT INFORMATION
  Report Type: 
  Country: None (occurrence: None)
  Receive Date: 20090310
  Receipt Date: 20090225
  Transmission Date: 20090719
  Serious: Yes (Other)
  Sender: FDA-Public Use
  Company Number: TRP_06105_2009

PATIENT
  Sex: Male

DRUGS (2)
  1. RIBASPHERE [Suspect]
     Indication: HEPATITIS C
     Dosage: (1000 MG)
     Dates: start: 20081215
  2. PEGASYS [Suspect]
     Indication: HEPATITIS C
     Dosage: (180 ?G 1X/WEEK)
     Dates: start: 20081215, end: 20090116

REACTIONS (7)
  - ENDODONTIC PROCEDURE [None]
  - FATIGUE [None]
  - IMPATIENCE [None]
  - INJECTION SITE RASH [None]
  - MOOD SWINGS [None]
  - PERIPHERAL COLDNESS [None]
  - WHITE BLOOD CELL COUNT DECREASED [None]
